FAERS Safety Report 17034945 (Version 3)
Quarter: 2019Q4

REPORT INFORMATION
  Report Type: Spontaneous
  Country: US (occurrence: US)
  Receive Date: 20191115
  Receipt Date: 20191129
  Transmission Date: 20200122
  Serious: Yes (Other)
  Sender: FDA-Public Use
  Company Number: US-009507513-1911USA005549

PATIENT
  Age: 18 Year
  Sex: Female
  Weight: 87.98 kg

DRUGS (2)
  1. NEXPLANON [Suspect]
     Active Substance: ETONOGESTREL
     Indication: CONTRACEPTION
     Dosage: 1 IMPLANT, IN EVERY 3 YEARS
     Route: 059
     Dates: start: 20180219, end: 20191106
  2. PROAIR HFA [Concomitant]
     Active Substance: ALBUTEROL SULFATE
     Indication: ASTHMA
     Dosage: 90 MICROGRAM, PRN

REACTIONS (4)
  - Device breakage [Recovered/Resolved]
  - Menstruation irregular [Recovered/Resolved]
  - Dyspareunia [Unknown]
  - Uterine haemorrhage [Unknown]

NARRATIVE: CASE EVENT DATE: 20180219
